FAERS Safety Report 16082682 (Version 4)
Quarter: 2019Q2

REPORT INFORMATION
  Report Type: Spontaneous
  Country: US (occurrence: US)
  Receive Date: 20190318
  Receipt Date: 20190611
  Transmission Date: 20190711
  Serious: No
  Sender: FDA-Public Use
  Company Number: US-BIOGEN-2019BI00710892

PATIENT
  Sex: Female

DRUGS (6)
  1. AMPYRA [Suspect]
     Active Substance: DALFAMPRIDINE
     Indication: GAIT DISTURBANCE
     Route: 065
  2. BACLOFEN. [Concomitant]
     Active Substance: BACLOFEN
     Route: 065
  3. CELEBREX [Concomitant]
     Active Substance: CELECOXIB
     Route: 065
  4. LEVOTHYROXINE SODIUM. [Concomitant]
     Active Substance: LEVOTHYROXINE SODIUM
     Route: 065
  5. PLEGRIDY [Suspect]
     Active Substance: PEGINTERFERON BETA-1A
     Indication: MULTIPLE SCLEROSIS
     Dosage: INJECT 125MCG SUBCUTANEOUSLY EVERY 2 WEEKS
     Route: 058
     Dates: start: 20180907
  6. SIMVASTATIN. [Concomitant]
     Active Substance: SIMVASTATIN
     Route: 065

REACTIONS (4)
  - Injection site erythema [Unknown]
  - Drug ineffective [Unknown]
  - Injection site rash [Unknown]
  - Injection site pruritus [Unknown]
